FAERS Safety Report 7084321-2 (Version None)
Quarter: 2010Q4

REPORT INFORMATION
  Report Type: 
  Country: None (occurrence: None)
  Receive Date: 20101104
  Receipt Date: 20101029
  Transmission Date: 20110411
  Serious: Yes (Other)
  Sender: FDA-Public Use
  Company Number: US-PFIZER INC-2010137847

PATIENT
  Sex: Male
  Weight: 74.83 kg

DRUGS (4)
  1. CHANTIX [Suspect]
     Indication: SMOKING CESSATION THERAPY
     Dosage: 1 MG, 2X/DAY
     Route: 048
     Dates: start: 20100801, end: 20101026
  2. REVATIO [Concomitant]
     Indication: HYPERTENSION
     Dosage: UNK
  3. XANAX [Concomitant]
     Indication: GENERALISED ANXIETY DISORDER
     Dosage: UNK
  4. ABILIFY [Concomitant]
     Indication: BIPOLAR I DISORDER
     Dosage: UNK

REACTIONS (2)
  - BIPOLAR I DISORDER [None]
  - MANIA [None]
